FAERS Safety Report 17924286 (Version 2)
Quarter: 2020Q3

REPORT INFORMATION
  Report Type: Spontaneous
  Country: CA (occurrence: CA)
  Receive Date: 20200622
  Receipt Date: 20200703
  Transmission Date: 20201103
  Serious: Yes (Death, Other)
  Sender: FDA-Public Use
  Company Number: CA-AMGEN-CANSP2020081481

PATIENT
  Age: 94 Year
  Sex: Female
  Weight: 72.9 kg

DRUGS (3)
  1. PROLIA [Suspect]
     Active Substance: DENOSUMAB
     Indication: OSTEOPOROSIS
     Dosage: 60 MILLIGRAM PER MILLILITRE, Q6MO
     Route: 058
     Dates: start: 20181118, end: 20200418
  2. DONEPEZIL. [Concomitant]
     Active Substance: DONEPEZIL
     Indication: DEMENTIA
     Dosage: 10 MILLIGRAM
     Dates: start: 20161229, end: 20200505
  3. QUETIAPINE. [Concomitant]
     Active Substance: QUETIAPINE
     Indication: PARANOIA
     Dosage: 25 MILLIGRAM, QHS
     Dates: start: 20171017, end: 20200605

REACTIONS (9)
  - Iliac artery occlusion [Unknown]
  - Fall [Recovered/Resolved]
  - Fracture [Unknown]
  - Pain [Unknown]
  - Asthenia [Recovered/Resolved]
  - Gait disturbance [Recovered/Resolved]
  - Arthralgia [Recovered/Resolved]
  - Pain in extremity [Unknown]
  - Death [Fatal]

NARRATIVE: CASE EVENT DATE: 20200418
